FAERS Safety Report 25688680 (Version 3)
Quarter: 2025Q3

REPORT INFORMATION
  Report Type: Spontaneous
  Country: US (occurrence: US)
  Receive Date: 20250818
  Receipt Date: 20250919
  Transmission Date: 20251021
  Serious: No
  Sender: BIOGEN
  Company Number: US-BIOGEN-2025BI01317614

PATIENT
  Age: 48 Year
  Sex: Female

DRUGS (16)
  1. VUMERITY [Suspect]
     Active Substance: DIROXIMEL FUMARATE
     Indication: Multiple sclerosis
     Dosage: TAKE 1 CAPSULE (231MG) BY MOUTH TWICE DAILY FOR THE FIRST 7 DAYS, THEN TAKE 2 CAPSULES (462MG) TW...
     Route: 050
     Dates: start: 20250703
  2. VUMERITY [Suspect]
     Active Substance: DIROXIMEL FUMARATE
     Dosage: TAKE 2 CAPSULES (462MG) BY MOUTH TWICE DAILY.
     Route: 050
  3. TRILEPTAL [Concomitant]
     Active Substance: OXCARBAZEPINE
     Route: 050
  4. BACLOFEN [Concomitant]
     Active Substance: BACLOFEN
     Route: 050
  5. SYNTHROID [Concomitant]
     Active Substance: LEVOTHYROXINE SODIUM
     Route: 050
  6. ALENDRONATE SODIUM [Concomitant]
     Active Substance: ALENDRONATE SODIUM
     Route: 050
  7. LIPITOR [Concomitant]
     Active Substance: ATORVASTATIN CALCIUM
     Route: 050
  8. AMITRIPTYLINE HYDROCHLORIDE [Concomitant]
     Active Substance: AMITRIPTYLINE HYDROCHLORIDE
     Route: 050
  9. VITAMIN D3 [Concomitant]
     Active Substance: CHOLECALCIFEROL
     Route: 050
  10. NURTEC ODT [Concomitant]
     Active Substance: RIMEGEPANT SULFATE
     Route: 050
  11. ADVAIR HFA [Concomitant]
     Active Substance: FLUTICASONE PROPIONATE\SALMETEROL XINAFOATE
     Route: 050
  12. ALBUTEROL SULFATE [Concomitant]
     Active Substance: ALBUTEROL SULFATE
     Route: 050
  13. CALCIUM GLUCONATE [Concomitant]
     Active Substance: CALCIUM GLUCONATE
     Route: 050
  14. ZYRTEC [Concomitant]
     Active Substance: CETIRIZINE HYDROCHLORIDE
     Route: 050
  15. IBUPROFEN [Concomitant]
     Active Substance: IBUPROFEN
  16. TYLENOL EXTRA STRENGTH [Concomitant]
     Active Substance: ACETAMINOPHEN
     Route: 050

REACTIONS (13)
  - Product storage error [Unknown]
  - Product after taste [Unknown]
  - Vulvovaginal pruritus [Unknown]
  - Urine odour abnormal [Unknown]
  - Somnolence [Unknown]
  - Paraesthesia [Unknown]
  - Nasopharyngitis [Unknown]
  - COVID-19 [Unknown]
  - Abdominal discomfort [Unknown]
  - Petechiae [Recovered/Resolved]
  - Rash [Unknown]
  - Pruritus [Unknown]
  - Flushing [Unknown]

NARRATIVE: CASE EVENT DATE: 20250701
